FAERS Safety Report 4997741-4 (Version None)
Quarter: 2006Q2

REPORT INFORMATION
  Report Type: 
  Country: None (occurrence: None)
  Receive Date: 20060510
  Receipt Date: 20060427
  Transmission Date: 20061013
  Serious: Yes (Death)
  Sender: FDA-Public Use
  Company Number: GB-JNJFOC-20060406082

PATIENT
  Age: 67 Year
  Sex: Male

DRUGS (5)
  1. REMICADE [Suspect]
     Indication: DRUG USE FOR UNKNOWN INDICATION
     Route: 042
  2. AZATHIOPRINE [Suspect]
     Indication: ARTHRITIS
     Route: 065
  3. PREDNISOLONE [Concomitant]
     Indication: ARTHRITIS
     Route: 065
  4. METHYLPREDNISOLONE [Concomitant]
     Route: 042
  5. CYCLOPHOSPHAMIDE [Concomitant]
     Route: 042

REACTIONS (5)
  - ANAEMIA [None]
  - DYSPNOEA [None]
  - INTERSTITIAL LUNG DISEASE [None]
  - PULMONARY FIBROSIS [None]
  - RESPIRATORY FAILURE [None]
